FAERS Safety Report 9060127 (Version 1)
Quarter: 2013Q1

REPORT INFORMATION
  Report Type: Spontaneous
  Country: US (occurrence: US)
  Receive Date: 20130212
  Receipt Date: 20130212
  Transmission Date: 20140127
  Serious: Yes (Hospitalization)
  Sender: FDA-Public Use
  Company Number: US-BAYER-2013-017109

PATIENT
  Age: 51 Year
  Sex: Female
  Weight: 64.85 kg

DRUGS (10)
  1. YAZ [Suspect]
  2. GIANVI [Suspect]
  3. LEVOTHYROXINE [Concomitant]
     Dosage: 150 MCG
     Route: 048
     Dates: start: 20090629, end: 20121117
  4. CITALOPRAM [Concomitant]
     Dosage: 20 MG, UNK
     Route: 048
     Dates: start: 20120126, end: 20121028
  5. CIPROFLOXACIN [Concomitant]
     Dosage: 500 MG, UNK
     Route: 048
     Dates: start: 20120801
  6. FLUCONAZOLE [Concomitant]
     Dosage: 150 MG, UNK
     Route: 048
     Dates: start: 20120801
  7. VITAMIN D [Concomitant]
  8. MAGNESIUM [Concomitant]
  9. FISH OIL [Concomitant]
  10. CELEXA [Concomitant]
     Indication: DEPRESSION

REACTIONS (1)
  - Pulmonary embolism [None]
